FAERS Safety Report 18181028 (Version 3)
Quarter: 2020Q4

REPORT INFORMATION
  Report Type: Spontaneous
  Country: GB (occurrence: GB)
  Receive Date: 20200821
  Receipt Date: 20201130
  Transmission Date: 20210113
  Serious: Yes (Other)
  Sender: FDA-Public Use
  Company Number: GB-EMD SERONO-9180398

PATIENT
  Age: 24 Year
  Sex: Male
  Weight: 82 kg

DRUGS (2)
  1. MAVENCLAD [Suspect]
     Active Substance: CLADRIBINE
     Indication: RELAPSING-REMITTING MULTIPLE SCLEROSIS
     Dosage: YEAR ONE WEEK ONE THERAPY
     Route: 048
     Dates: start: 20190218
  2. MAVENCLAD [Suspect]
     Active Substance: CLADRIBINE
     Dosage: Y1 W2: TWO TABLETS (20 MG) ON DAYS 1 AND 2 AND ONE TABLET (10 MG) ON DAYS 3 TO 5
     Route: 048
     Dates: start: 201903

REACTIONS (4)
  - Pain in extremity [Unknown]
  - Deep vein thrombosis [Recovered/Resolved]
  - Blood fibrinogen increased [Unknown]
  - Muscle tightness [Unknown]

NARRATIVE: CASE EVENT DATE: 202005
